FAERS Safety Report 7501487-8 (Version None)
Quarter: 2011Q2

REPORT INFORMATION
  Report Type: 
  Country: None (occurrence: None)
  Receive Date: 20110524
  Receipt Date: 20110518
  Transmission Date: 20111010
  Serious: Yes (Other)
  Sender: FDA-Public Use
  Company Number: JP-PFIZER INC-2011088348

PATIENT
  Age: 70 Year
  Sex: Male

DRUGS (1)
  1. ZYVOX [Suspect]
     Dosage: 1200 MG, 1X/DAY
     Route: 041

REACTIONS (7)
  - DRUG INEFFECTIVE [None]
  - INFECTION [None]
  - HYPOKINESIA [None]
  - PLATELET COUNT DECREASED [None]
  - CARDIAC FAILURE [None]
  - BLOOD PRESSURE DECREASED [None]
  - DEHYDRATION [None]
